FAERS Safety Report 9518413 (Version 3)
Quarter: 2013Q4

REPORT INFORMATION
  Report Type: Spontaneous
  Country: JP (occurrence: JP)
  Receive Date: 20130912
  Receipt Date: 20131023
  Transmission Date: 20140711
  Serious: Yes (Death, Hospitalization)
  Sender: FDA-Public Use
  Company Number: JP-CELGENEUS-087-21660-13091346

PATIENT
  Age: 66 Year
  Sex: Male
  Weight: 57 kg

DRUGS (5)
  1. ABRAXANE [Suspect]
     Indication: SQUAMOUS CELL CARCINOMA OF LUNG
     Dosage: 150 MILLIGRAM
     Route: 041
     Dates: start: 20130822, end: 20130829
  2. CARBOPLATIN [Suspect]
     Indication: SQUAMOUS CELL CARCINOMA OF LUNG
     Dosage: 400 MILLIGRAM
     Route: 041
     Dates: start: 20130823
  3. GRANISETRON HYDROCHLORIDE [Concomitant]
     Indication: PROPHYLAXIS
     Dosage: 3 MILLIGRAM
     Route: 065
     Dates: start: 20130822, end: 20130829
  4. DECADRON [Concomitant]
     Indication: PROPHYLAXIS
     Route: 065
     Dates: start: 20130822, end: 20130829
  5. FIRSTCIN [Concomitant]
     Indication: PRODUCT USED FOR UNKNOWN INDICATION
     Dosage: 3 GRAM
     Route: 065

REACTIONS (5)
  - Cardiac arrest [Fatal]
  - Febrile neutropenia [Not Recovered/Not Resolved]
  - Vomiting [Not Recovered/Not Resolved]
  - Abdominal pain [Not Recovered/Not Resolved]
  - Diarrhoea [Not Recovered/Not Resolved]
